FAERS Safety Report 5507238-0 (Version None)
Quarter: 2007Q4

REPORT INFORMATION
  Report Type: 
  Country: None (occurrence: None)
  Receive Date: 20071105
  Receipt Date: 20071105
  Transmission Date: 20080405
  Serious: Yes (Life-Threatening)
  Sender: FDA-Public Use
  Company Number: None

PATIENT
  Age: 60 Year
  Sex: Male
  Weight: 117.9352 kg

DRUGS (1)
  1. ZOCOR [Suspect]

REACTIONS (1)
  - RHABDOMYOLYSIS [None]
